FAERS Safety Report 4557569-6 (Version None)
Quarter: 2005Q1

REPORT INFORMATION
  Report Type: 
  Country: None (occurrence: None)
  Receive Date: 20050120
  Receipt Date: 20050112
  Transmission Date: 20050727
  Serious: Yes (Death, Hospitalization)
  Sender: FDA-Public Use
  Company Number: US-MERCK-0501USA01386

PATIENT
  Age: 86 Year
  Sex: Female

DRUGS (8)
  1. ZOCOR [Suspect]
     Indication: BLOOD CHOLESTEROL INCREASED
     Route: 048
     Dates: start: 20020901, end: 20040101
  2. VERAPAMIL [Suspect]
     Route: 065
  3. LOPRESSOR [Concomitant]
     Route: 065
  4. MAXZIDE [Concomitant]
     Route: 065
  5. ALTACE [Concomitant]
     Route: 065
  6. ASPIRIN [Concomitant]
     Route: 065
  7. CALCIUM (UNSPECIFIED) [Concomitant]
     Route: 065
  8. NEXIUM [Concomitant]
     Route: 065

REACTIONS (4)
  - CORONARY ARTERY DISEASE [None]
  - DRUG INTERACTION [None]
  - MYOCARDIAL INFARCTION [None]
  - RENAL FAILURE [None]
